FAERS Safety Report 5696337-9 (Version None)
Quarter: 2008Q2

REPORT INFORMATION
  Report Type: 
  Country: None (occurrence: None)
  Receive Date: 20080407
  Receipt Date: 20080326
  Transmission Date: 20081010
  Serious: Yes (Other)
  Sender: FDA-Public Use
  Company Number: US-PFIZER INC-2008011477

PATIENT

DRUGS (1)
  1. TIKOSYN [Suspect]

REACTIONS (1)
  - RENAL IMPAIRMENT [None]
